FAERS Safety Report 11288372 (Version 2)
Quarter: 2015Q3

REPORT INFORMATION
  Report Type: Spontaneous
  Country: US (occurrence: US)
  Receive Date: 20150721
  Receipt Date: 20150721
  Transmission Date: 20151125
  Serious: No
  Sender: FDA-Public Use
  Company Number: US-UNITED THERAPEUTICS-UNT-2014-011929

PATIENT
  Sex: Female
  Weight: 58.96 kg

DRUGS (3)
  1. ADCIRCA [Concomitant]
     Active Substance: TADALAFIL
     Indication: PRODUCT USED FOR UNKNOWN INDICATION
  2. LETAIRIS [Concomitant]
     Active Substance: AMBRISENTAN
     Indication: PRODUCT USED FOR UNKNOWN INDICATION
  3. REMODULIN [Suspect]
     Active Substance: TREPROSTINIL
     Indication: PULMONARY ARTERIAL HYPERTENSION
     Dosage: 0.016 MG/KG/MIN, CONTINUING
     Route: 058
     Dates: start: 20130909

REACTIONS (6)
  - Dyspnoea [Unknown]
  - Fatigue [Unknown]
  - Infusion site irritation [Unknown]
  - Infusion site pain [Unknown]
  - Sinus disorder [Unknown]
  - Nausea [Unknown]
